FAERS Safety Report 9305116 (Version 6)
Quarter: 2013Q4

REPORT INFORMATION
  Report Type: Spontaneous
  Country: US (occurrence: None)
  Receive Date: 20130521
  Receipt Date: 20131113
  Transmission Date: 20140711
  Serious: Yes (Hospitalization)
  Sender: FDA-Public Use
  Company Number: AUR-APL-2013-04111

PATIENT
  Age: 74 Year
  Sex: Female
  Weight: 75.74 kg

DRUGS (15)
  1. LOSARTAN [Suspect]
     Indication: HYPERTENSION
     Dosage: 100 MG (50 MG, 2 IN 1 D)
     Route: 048
     Dates: start: 20120928
  2. AMLODIPINE [Suspect]
     Indication: PRODUCT USED FOR UNKNOWN INDICATION
     Dosage: 10 MG (5 MG, 2 IN 1 D)
     Route: 048
     Dates: start: 20121113
  3. NEXIUM (ESOMEPRAZOLE MAGNESIUM) [Concomitant]
  4. ATIVAN (LORAZEPAM) [Concomitant]
  5. ZETIA (EZERIMIBE) [Concomitant]
  6. LIPITOR (ATORVASTATIN CALCIUM) [Concomitant]
  7. TOPROL XL (METOPROLOL SUCCINATE) (100 MILLIGRAM) (METOPROLOL SUCCINATE) [Concomitant]
  8. DICLOFENAC (DICLOFENAC) [Concomitant]
  9. METHOTREXATE (METHOTREXATE) [Concomitant]
  10. NORVASC (AMLODIPINE BESILATE) [Concomitant]
  11. COZAAR (LOSARTAN POTASSIUM) (50 MILLIGRAM, TABLETS) (LOSARTAN POTASSIUM) [Concomitant]
  12. PREDNISONE (PREDNISONE) [Concomitant]
  13. NEURONTIN (GABEPENTIN) [Concomitant]
  14. LEUCOVORIN (FOLINIC ACID) [Concomitant]
  15. ULTRACET (ULTRACET) [Concomitant]

REACTIONS (11)
  - Cerebrovascular accident [None]
  - Culture urine positive [None]
  - Enterococcus test positive [None]
  - Lacunar infarction [None]
  - Cerebral atrophy [None]
  - Accelerated hypertension [None]
  - Red cell distribution width increased [None]
  - Lymphocyte percentage decreased [None]
  - Cerebral arteriosclerosis [None]
  - Dehydration [None]
  - Transient ischaemic attack [None]
